FAERS Safety Report 13173326 (Version 2)
Quarter: 2018Q1

REPORT INFORMATION
  Report Type: Spontaneous
  Country: US (occurrence: US)
  Receive Date: 20170131
  Receipt Date: 20180126
  Transmission Date: 20180508
  Serious: No
  Sender: FDA-Public Use
  Company Number: US-ABBVIE-16K-163-1662551-00

PATIENT

DRUGS (1)
  1. HUMIRA [Suspect]
     Active Substance: ADALIMUMAB
     Indication: PRODUCT USED FOR UNKNOWN INDICATION
     Route: 058

REACTIONS (14)
  - Insomnia [Unknown]
  - Fall [Unknown]
  - Joint range of motion decreased [Unknown]
  - Emotional distress [Unknown]
  - Arthropathy [Unknown]
  - Musculoskeletal pain [Unknown]
  - Gait disturbance [Unknown]
  - Swelling [Unknown]
  - Neck pain [Unknown]
  - Asthenia [Unknown]
  - Pain [Unknown]
  - Pain in extremity [Unknown]
  - Fatigue [Unknown]
  - Musculoskeletal stiffness [Unknown]

NARRATIVE: CASE EVENT DATE: 20160625
